FAERS Safety Report 11099758 (Version 1)
Quarter: 2015Q2

REPORT INFORMATION
  Report Type: Spontaneous
  Country: TR (occurrence: None)
  Receive Date: 20150506
  Receipt Date: 20150506
  Transmission Date: 20150821
  Serious: Yes (Hospitalization)
  Sender: FDA-Public Use
  Company Number: TIR-04495

PATIENT
  Age: 48 Year
  Sex: Female

DRUGS (1)
  1. UNSPECIFIED LEVOTHYROXINE (LEVOTHYROXINE) [Suspect]
     Active Substance: LEVOTHYROXINE
     Indication: WEIGHT DECREASED

REACTIONS (7)
  - Irritability [None]
  - Purging [None]
  - Hyperthyroidism [None]
  - Confusional state [None]
  - Mutism [None]
  - Off label use [None]
  - Intentional product misuse [None]
